FAERS Safety Report 7497043-0 (Version None)
Quarter: 2011Q2

REPORT INFORMATION
  Report Type: 
  Country: None (occurrence: None)
  Receive Date: 20110523
  Receipt Date: 20110518
  Transmission Date: 20111010
  Serious: Yes (Other)
  Sender: FDA-Public Use
  Company Number: GB-GENZYME-THYM-1002481

PATIENT

DRUGS (1)
  1. THYMOGLOBULIN [Suspect]
     Route: 042

REACTIONS (1)
  - PNEUMONITIS [None]
